FAERS Safety Report 18802599 (Version 1)
Quarter: 2021Q1

REPORT INFORMATION
  Report Type: Spontaneous
  Country: IN (occurrence: IN)
  Receive Date: 20210128
  Receipt Date: 20210128
  Transmission Date: 20210419
  Serious: Yes (Other)
  Sender: FDA-Public Use
  Company Number: IN-ENDO PHARMACEUTICALS INC-2021-000570

PATIENT
  Age: 29 Year
  Sex: Female

DRUGS (1)
  1. VEPESID [Suspect]
     Active Substance: ETOPOSIDE
     Indication: BREAST CANCER METASTATIC
     Dosage: 50 MG/M2, UNKNOWN
     Route: 048

REACTIONS (2)
  - Macular ischaemia [Unknown]
  - Off label use [Unknown]
